FAERS Safety Report 19296834 (Version 1)
Quarter: 2021Q2

REPORT INFORMATION
  Report Type: Spontaneous
  Country: CA (occurrence: CA)
  Receive Date: 20210524
  Receipt Date: 20210524
  Transmission Date: 20210717
  Serious: Yes (Other)
  Sender: FDA-Public Use
  Company Number: CA-SLATE RUN PHARMACEUTICALS-21CA000487

PATIENT

DRUGS (3)
  1. RIZATRIPTAN. [Concomitant]
     Active Substance: RIZATRIPTAN
     Indication: MIGRAINE
     Dosage: UNK
     Route: 065
  2. METHYLPHENIDATE. [Concomitant]
     Active Substance: METHYLPHENIDATE
     Indication: ATTENTION DEFICIT HYPERACTIVITY DISORDER
     Route: 065
  3. VANCOMYCIN HYDROCHLORIDE USP [Suspect]
     Active Substance: VANCOMYCIN HYDROCHLORIDE
     Indication: GROIN ABSCESS
     Route: 042

REACTIONS (2)
  - Kounis syndrome [Recovered/Resolved]
  - Drug hypersensitivity [Recovered/Resolved]
